FAERS Safety Report 20895606 (Version 1)
Quarter: 2022Q2

REPORT INFORMATION
  Report Type: Spontaneous
  Country: US (occurrence: None)
  Receive Date: 20220531
  Receipt Date: 20220531
  Transmission Date: 20220720
  Serious: No
  Sender: FDA-Public Use
  Company Number: None

PATIENT
  Age: 30 Year
  Sex: Male
  Weight: 117.93 kg

DRUGS (3)
  1. TALTZ [Suspect]
     Active Substance: IXEKIZUMAB
     Indication: Ankylosing spondylitis
     Dosage: INJECT 80MG (1 PEN) SUBCUTANEOUSLY EVERY 4 WEEKS AS DIRECTED?
     Route: 058
     Dates: start: 202205
  2. TALTZ [Suspect]
     Active Substance: IXEKIZUMAB
     Indication: Senile osteoporosis
  3. TALTZ [Suspect]
     Active Substance: IXEKIZUMAB
     Indication: Osteoporosis

REACTIONS (1)
  - Pneumonia [None]
